FAERS Safety Report 4965358-3 (Version None)
Quarter: 2006Q2

REPORT INFORMATION
  Report Type: 
  Country: None (occurrence: None)
  Receive Date: 20060406
  Receipt Date: 20030605
  Transmission Date: 20061013
  Serious: Yes (Hospitalization)
  Sender: FDA-Public Use
  Company Number: US-MERCK-0306USA00859

PATIENT
  Age: 38 Year
  Sex: Male
  Weight: 95 kg

DRUGS (5)
  1. NORTRIPTYLINE HCL [Concomitant]
     Route: 048
  2. NORTRIPTYLINE [Concomitant]
     Route: 065
  3. VIOXX [Suspect]
     Indication: PAIN IN EXTREMITY
     Route: 048
     Dates: start: 20001101, end: 20010319
  4. VIOXX [Suspect]
     Indication: BACK PAIN
     Route: 048
     Dates: start: 20001101, end: 20010319
  5. PROZAC [Concomitant]
     Route: 065

REACTIONS (7)
  - ANXIETY [None]
  - ARRHYTHMIA [None]
  - DEPRESSION [None]
  - EYE PENETRATION [None]
  - HEADACHE [None]
  - SWELLING [None]
  - VISION BLURRED [None]
